FAERS Safety Report 5711134-3 (Version None)
Quarter: 2008Q2

REPORT INFORMATION
  Report Type: 
  Country: None (occurrence: None)
  Receive Date: 20080421
  Receipt Date: 20080410
  Transmission Date: 20081010
  Serious: Yes (Hospitalization)
  Sender: FDA-Public Use
  Company Number: JP-BAYER-200810420BYL

PATIENT
  Age: 75 Year
  Sex: Male
  Weight: 69 kg

DRUGS (11)
  1. CIPROFLOXACIN [Suspect]
     Indication: URINARY TRACT INFECTION
     Dosage: TOTAL DAILY DOSE: 300 MG  UNIT DOSE: 100 MG
     Route: 048
     Dates: start: 20080221, end: 20080222
  2. MYSLEE [Concomitant]
     Route: 048
  3. MARZULENE [Concomitant]
     Route: 048
  4. RESPLEN [Concomitant]
     Route: 048
  5. MUCOSOLVAN [Concomitant]
     Route: 048
  6. MAINTATE [Concomitant]
     Route: 048
  7. NORVASC [Concomitant]
     Route: 048
  8. ASPIRIN [Concomitant]
     Route: 048
  9. SIGMART [Concomitant]
     Route: 065
  10. DIOVAN [Concomitant]
     Route: 048
  11. PROSTAL [Concomitant]
     Indication: PROSTATE CANCER
     Route: 048
     Dates: start: 20050101

REACTIONS (2)
  - BLOOD CREATINE PHOSPHOKINASE INCREASED [None]
  - RHABDOMYOLYSIS [None]
